FAERS Safety Report 10505719 (Version 2)
Quarter: 2014Q4

REPORT INFORMATION
  Report Type: Spontaneous
  Country: NO (occurrence: NO)
  Receive Date: 20141008
  Receipt Date: 20141010
  Transmission Date: 20150528
  Serious: Yes (Other)
  Sender: FDA-Public Use
  Company Number: NO-PFIZER INC-2014273142

PATIENT
  Age: 25 Year
  Sex: Male

DRUGS (4)
  1. DOLCONTIN [Suspect]
     Active Substance: MORPHINE
     Indication: PAIN
     Dosage: 200 MG, UNK
     Route: 042
     Dates: start: 2007, end: 2009
  2. LYRICA [Suspect]
     Active Substance: PREGABALIN
     Indication: DRUG WITHDRAWAL SYNDROME
  3. LYRICA [Suspect]
     Active Substance: PREGABALIN
     Indication: ANXIETY
     Dosage: SEVERAL THOUSAND MG
     Dates: start: 2009
  4. DOLCONTIN [Suspect]
     Active Substance: MORPHINE
     Dosage: UNK
     Dates: end: 2014

REACTIONS (5)
  - Substance use [Recovering/Resolving]
  - Intentional product use issue [Recovering/Resolving]
  - Drug dependence [Recovering/Resolving]
  - Intentional overdose [Recovering/Resolving]
  - Drug abuse [Recovering/Resolving]

NARRATIVE: CASE EVENT DATE: 2009
